FAERS Safety Report 5734042-0 (Version None)
Quarter: 2008Q2

REPORT INFORMATION
  Report Type: 
  Country: None (occurrence: None)
  Receive Date: 20080509
  Receipt Date: 20080428
  Transmission Date: 20081010
  Serious: Yes (Other)
  Sender: FDA-Public Use
  Company Number: JP-PFIZER INC-2008038187

PATIENT

DRUGS (2)
  1. SOLANAX [Suspect]
  2. TRIAZOLAM [Concomitant]

REACTIONS (2)
  - DRUG EXPOSURE DURING PREGNANCY [None]
  - GASTROINTESTINAL HAEMORRHAGE [None]
